FAERS Safety Report 5778609-2 (Version None)
Quarter: 2008Q2

REPORT INFORMATION
  Report Type: 
  Country: None (occurrence: None)
  Receive Date: 20080617
  Receipt Date: 20080605
  Transmission Date: 20081010
  Serious: Yes (Death)
  Sender: FDA-Public Use
  Company Number: 2008AL006520

PATIENT
  Sex: Male

DRUGS (8)
  1. DIGOXIN [Suspect]
     Dosage: .125MG DAILY PO
     Route: 048
  2. ASPIRIN [Concomitant]
  3. HYDROXYCHLOROQUINE SULFATE [Concomitant]
  4. PLAVIX [Concomitant]
  5. PREDNISONE [Concomitant]
  6. PROPOXYPHENE NAPSYLATE AND ACETAMINOPHEN [Concomitant]
  7. HYDROCODONE [Concomitant]
  8. LISINOPRIL [Concomitant]

REACTIONS (5)
  - CARDIAC DISORDER [None]
  - DIZZINESS [None]
  - HYPOTENSION [None]
  - NAUSEA [None]
  - VOMITING [None]
